FAERS Safety Report 22529176 (Version 1)
Quarter: 2023Q2

REPORT INFORMATION
  Report Type: Spontaneous
  Country: KR (occurrence: KR)
  Receive Date: 20230607
  Receipt Date: 20230607
  Transmission Date: 20230721
  Serious: Yes (Hospitalization)
  Sender: FDA-Public Use
  Company Number: KR-ORGANON-O2306KOR000142

PATIENT
  Age: 56 Year
  Sex: Female
  Weight: 48 kg

DRUGS (9)
  1. HYDROCHLOROTHIAZIDE\LOSARTAN POTASSIUM [Suspect]
     Active Substance: HYDROCHLOROTHIAZIDE\LOSARTAN POTASSIUM
     Indication: Essential hypertension
     Dosage: 1 FORMULATION
     Route: 048
     Dates: start: 2016
  2. EZETIMIBE\ROSUVASTATIN CALCIUM [Suspect]
     Active Substance: EZETIMIBE\ROSUVASTATIN CALCIUM
     Indication: Lipoprotein metabolism disorder
     Dosage: UNK
     Route: 048
     Dates: start: 20161221, end: 20170713
  3. ALMAGATE [Concomitant]
     Active Substance: ALMAGATE
     Indication: Prophylaxis
     Dosage: 3 FORMULATION
     Route: 048
     Dates: start: 20170322, end: 20170726
  4. SULFAMETHOXAZOLE AND TRIMETHOPRIM [Concomitant]
     Active Substance: SULFAMETHOXAZOLE\TRIMETHOPRIM
     Indication: Pneumonia
     Dosage: 2 FORMULATION, TABLET UNCOATED
     Route: 048
     Dates: start: 20170622, end: 20170707
  5. LEVODROPROPIZINE [Concomitant]
     Active Substance: LEVODROPROPIZINE
     Indication: Pneumonia
     Dosage: 3 FORMULATION, TABLET UNCOATED
     Route: 048
     Dates: start: 20170617, end: 20170707
  6. CODEINE PHOSPHATE [Concomitant]
     Active Substance: CODEINE PHOSPHATE
     Indication: Pneumonia
     Dosage: 20 MILLIGRAM, TABLET UNCOATED
     Route: 048
     Dates: start: 20170620, end: 20170707
  7. BACILLUS SUBTILIS;ENTEROCOCCUS FAECIUM [Concomitant]
     Indication: Prophylaxis
     Dosage: 3 FORMULATION
     Route: 048
     Dates: start: 20170621, end: 20170707
  8. MONTMORILLONITE [Concomitant]
     Active Substance: MONTMORILLONITE
     Indication: Prophylaxis
     Dosage: 3 FORMULATION
     Route: 048
     Dates: start: 20170617
  9. CIPROFLOXACIN [Concomitant]
     Active Substance: CIPROFLOXACIN
     Indication: Pneumonia
     Dosage: 400 MILLIGRAM, ROUTE: VEIN
     Route: 042
     Dates: start: 20170623, end: 20170630

REACTIONS (1)
  - Leukaemia monocytic [Not Recovered/Not Resolved]

NARRATIVE: CASE EVENT DATE: 20170627
